FAERS Safety Report 24558570 (Version 8)
Quarter: 2025Q3

REPORT INFORMATION
  Report Type: Spontaneous
  Country: CA (occurrence: CA)
  Receive Date: 20241029
  Receipt Date: 20250707
  Transmission Date: 20251021
  Serious: Yes (Hospitalization, Other)
  Sender: INTERCEPT PHARMACEUTICALS
  Company Number: CA-ADVANZ PHARMA-202410008710

PATIENT
  Sex: Female

DRUGS (12)
  1. OCALIVA [Suspect]
     Active Substance: OBETICHOLIC ACID
     Indication: Primary biliary cholangitis
     Route: 048
     Dates: start: 20230217
  2. OCALIVA [Suspect]
     Active Substance: OBETICHOLIC ACID
     Route: 048
     Dates: end: 202506
  3. URSODIOL [Concomitant]
     Active Substance: URSODIOL
     Dates: start: 19970312
  4. RABEPRAZOLE [Concomitant]
     Active Substance: RABEPRAZOLE
  5. ROSUVASTATIN [Concomitant]
     Active Substance: ROSUVASTATIN
  6. ZOPICLONE [Concomitant]
     Active Substance: ZOPICLONE
  7. DULOXETINE [Concomitant]
     Active Substance: DULOXETINE
  8. DULOXETINE [Concomitant]
     Active Substance: DULOXETINE
  9. DULOXETINE [Concomitant]
     Active Substance: DULOXETINE
  10. RAMIPRIL [Concomitant]
     Active Substance: RAMIPRIL
  11. PREDNISONE [Concomitant]
     Active Substance: PREDNISONE
  12. IRON [Concomitant]
     Active Substance: IRON

REACTIONS (28)
  - Melaena [Unknown]
  - Hospitalisation [Unknown]
  - Acute kidney injury [Unknown]
  - Gastric ulcer [Unknown]
  - Arteriovenous malformation [Unknown]
  - Hip fracture [Recovered/Resolved]
  - Femur fracture [Unknown]
  - Hip arthroplasty [Recovering/Resolving]
  - Diverticulum intestinal [Unknown]
  - Blood bilirubin abnormal [Recovering/Resolving]
  - Bowel movement irregularity [Unknown]
  - Blood potassium decreased [Unknown]
  - Weight decreased [Unknown]
  - Electrolyte imbalance [Unknown]
  - Fall [Unknown]
  - Hiatus hernia [Unknown]
  - Bedridden [Not Recovered/Not Resolved]
  - Gamma-glutamyltransferase abnormal [Not Recovered/Not Resolved]
  - Aspartate aminotransferase abnormal [Unknown]
  - Blood alkaline phosphatase abnormal [Unknown]
  - Abdominal pain [Unknown]
  - Constipation [Unknown]
  - Pruritus [Recovered/Resolved]
  - Oedema peripheral [Unknown]
  - Peripheral swelling [Unknown]
  - Presyncope [Unknown]
  - Drug ineffective [Unknown]
  - Therapy cessation [Unknown]
